FAERS Safety Report 20861190 (Version 1)
Quarter: 2022Q2

REPORT INFORMATION
  Report Type: Spontaneous
  Country: US (occurrence: None)
  Receive Date: 20220520
  Receipt Date: 20220520
  Transmission Date: 20220721
  Serious: Yes (Other)
  Sender: FDA-Public Use
  Company Number: None

PATIENT
  Age: 56 Year
  Sex: Female
  Weight: 72.9 kg

DRUGS (8)
  1. ESTRADIOL [Suspect]
     Active Substance: ESTRADIOL
     Indication: Menopause
     Dosage: OTHER QUANTITY : 0.25 INSERT;?OTHER FREQUENCY : TWICE A WEEK;?
     Route: 067
     Dates: start: 20220426, end: 20220518
  2. LOSARTAN [Concomitant]
     Active Substance: LOSARTAN
  3. Ozempic 1mg/dose [Concomitant]
  4. HERBALS [Concomitant]
     Active Substance: HERBALS
  5. Vit. B12 [Concomitant]
  6. BIOTIN [Concomitant]
     Active Substance: BIOTIN
  7. Multi vitamin for women over 50 [Concomitant]
  8. PROBIOTICS NOS [Concomitant]
     Active Substance: PROBIOTICS NOS

REACTIONS (18)
  - Back pain [None]
  - Chills [None]
  - Headache [None]
  - Pruritus [None]
  - Vaginal discharge [None]
  - Pain [None]
  - Ear congestion [None]
  - Nasal congestion [None]
  - Rhinorrhoea [None]
  - Oropharyngeal pain [None]
  - Fatigue [None]
  - Insomnia [None]
  - Dizziness [None]
  - Pelvic pain [None]
  - Vulvovaginal pruritus [None]
  - Vulvovaginal mycotic infection [None]
  - Urinary tract infection [None]
  - Hypersensitivity [None]

NARRATIVE: CASE EVENT DATE: 20220509
